FAERS Safety Report 19177826 (Version 1)
Quarter: 2021Q2

REPORT INFORMATION
  Report Type: Spontaneous
  Country: ES (occurrence: ES)
  Receive Date: 20210426
  Receipt Date: 20210426
  Transmission Date: 20210717
  Serious: Yes (Hospitalization, Other)
  Sender: FDA-Public Use
  Company Number: ES-LUPIN PHARMACEUTICALS INC.-2021-05213

PATIENT
  Age: 6 Year
  Sex: Female

DRUGS (6)
  1. ETHAMBUTOL [Concomitant]
     Active Substance: ETHAMBUTOL HYDROCHLORIDE
     Indication: PULMONARY TUBERCULOSIS
     Dosage: 18.5 MILLIGRAM/KILOGRAM, QD
     Route: 065
  2. CLOFAZIMINE [Concomitant]
     Active Substance: CLOFAZIMINE
     Indication: PULMONARY TUBERCULOSIS
     Dosage: 100 MILLIGRAM, EVERY SECOND DAY
     Route: 065
  3. LEVOFLOXACIN. [Suspect]
     Active Substance: LEVOFLOXACIN
     Indication: PULMONARY TUBERCULOSIS
     Dosage: 18.5 MILLIGRAM/KILOGRAM, QD
     Route: 065
  4. CYCLOSERINE. [Suspect]
     Active Substance: CYCLOSERINE
     Indication: PULMONARY TUBERCULOSIS
     Dosage: 18.5 MILLIGRAM/KILOGRAM, QD
     Route: 065
  5. LINEZOLID. [Concomitant]
     Active Substance: LINEZOLID
     Indication: PULMONARY TUBERCULOSIS
     Dosage: 14 MILLIGRAM/KILOGRAM, QD
     Route: 065
  6. DELAMANID [Concomitant]
     Active Substance: DELAMANID
     Indication: PULMONARY TUBERCULOSIS
     Dosage: 4 MILLIGRAM/KILOGRAM, QD
     Route: 065

REACTIONS (8)
  - Adjustment disorder [Recovered/Resolved]
  - Insomnia [Recovered/Resolved]
  - Anxiety [Recovered/Resolved]
  - Torticollis [Recovered/Resolved]
  - Antisocial behaviour [Recovered/Resolved]
  - Vomiting [Recovered/Resolved]
  - Facial paralysis [Recovered/Resolved]
  - Intracranial pressure increased [Recovering/Resolving]
